FAERS Safety Report 6489934-4 (Version None)
Quarter: 2009Q4

REPORT INFORMATION
  Report Type: 
  Country: None (occurrence: None)
  Receive Date: 20091211
  Receipt Date: 20091209
  Transmission Date: 20100525
  Serious: Yes (Life-Threatening)
  Sender: FDA-Public Use
  Company Number: US-EISAI INC.-E2080-00239-CLI-US

PATIENT
  Sex: Female
  Weight: 73 kg

DRUGS (9)
  1. E2080 [Suspect]
     Indication: PARTIAL SEIZURES
     Route: 048
     Dates: start: 20080131
  2. SIMVASTATIN [Concomitant]
     Indication: HYPERTENSION
     Route: 048
     Dates: start: 20040706
  3. ZONISAMIDE [Concomitant]
     Route: 048
     Dates: start: 20050819
  4. LAMOTRIGINE [Concomitant]
     Route: 048
     Dates: start: 20000110
  5. LEVETIRACETAM [Concomitant]
     Route: 048
     Dates: start: 20070716
  6. LISINOPRIL [Concomitant]
     Indication: HYPERTENSION
     Route: 048
     Dates: start: 20090101
  7. PANTOPRAZOLE [Concomitant]
     Route: 048
     Dates: start: 20090101
  8. LORAZEPAM [Concomitant]
     Dosage: 1 MG PRN
     Route: 048
     Dates: start: 20070122
  9. TIOTROPIUM [Concomitant]
     Indication: ASTHMA
     Dosage: 1 INHALATION PRN
     Dates: start: 20070103

REACTIONS (1)
  - MYOCARDIAL INFARCTION [None]
